FAERS Safety Report 4490109-9 (Version None)
Quarter: 2004Q4

REPORT INFORMATION
  Report Type: 
  Country: None (occurrence: None)
  Receive Date: 20041028
  Receipt Date: 20041021
  Transmission Date: 20050328
  Serious: Yes (Hospitalization, Other)
  Sender: FDA-Public Use
  Company Number: USA-2004-0016917

PATIENT
  Age: 65 Year
  Sex: Male
  Weight: 88.4 kg

DRUGS (9)
  1. OXYCONTIN [Suspect]
     Indication: PAIN
     Dosage: SEE IMAGE
  2. PERCOCET [Suspect]
     Indication: MIGRAINE
     Dates: start: 20041111
  3. TOPROL-XL [Concomitant]
  4. SYNTHROID [Concomitant]
  5. PERCOCET [Concomitant]
  6. EFFEXOR [Concomitant]
  7. DOXEPIN (DOXEPIN) [Concomitant]
  8. LIPITOR [Concomitant]
  9. ASPIRIN [Concomitant]

REACTIONS (8)
  - ACCIDENTAL OVERDOSE [None]
  - DELIRIUM [None]
  - DEPRESSED LEVEL OF CONSCIOUSNESS [None]
  - HEPATIC FUNCTION ABNORMAL [None]
  - INADEQUATE ANALGESIA [None]
  - MIGRAINE [None]
  - RESPIRATORY DEPRESSION [None]
  - SOMNOLENCE [None]
